FAERS Safety Report 8458092-9 (Version None)
Quarter: 2012Q2

REPORT INFORMATION
  Report Type: 
  Country: None (occurrence: None)
  Receive Date: 20120614
  Receipt Date: 20120607
  Transmission Date: 20120825
  Serious: Yes (Other)
  Sender: FDA-Public Use
  Company Number: 135222

PATIENT
  Age: 12 Year
  Sex: Female

DRUGS (1)
  1. ADENOSINE [Suspect]
     Indication: SUPRAVENTRICULAR TACHYCARDIA
     Dosage: 150 UG/KG, 200 UG/KG INTRA-ARTERIAL INJECTION
     Route: 013

REACTIONS (7)
  - NAUSEA [None]
  - DIZZINESS [None]
  - LIVEDO RETICULARIS [None]
  - PAIN [None]
  - MEDICATION ERROR [None]
  - INCORRECT ROUTE OF DRUG ADMINISTRATION [None]
  - VISION BLURRED [None]
